FAERS Safety Report 19879625 (Version 2)
Quarter: 2021Q4

REPORT INFORMATION
  Report Type: Spontaneous
  Country: US (occurrence: US)
  Receive Date: 20210924
  Receipt Date: 20211223
  Transmission Date: 20220303
  Serious: Yes (Other)
  Sender: FDA-Public Use
  Company Number: US-PFIZER INC-2019507901

PATIENT
  Age: 81 Year

DRUGS (1)
  1. PRISTIQ EXTENDED-RELEASE [Suspect]
     Active Substance: DESVENLAFAXINE SUCCINATE
     Indication: Bipolar II disorder
     Dosage: 100 MG, DAILY (1 TABLET BY MOUTH DAILY)
     Route: 048
     Dates: start: 20191119

REACTIONS (3)
  - Cerebrovascular accident [Unknown]
  - Bradyphrenia [Unknown]
  - Off label use [Unknown]
